FAERS Safety Report 7492772-7 (Version None)
Quarter: 2011Q2

REPORT INFORMATION
  Report Type: 
  Country: None (occurrence: None)
  Receive Date: 20110519
  Receipt Date: 20110208
  Transmission Date: 20111010
  Serious: No
  Sender: FDA-Public Use
  Company Number: US-BAYER-2010-008942

PATIENT
  Age: 67 Year
  Sex: Male
  Weight: 68.027 kg

DRUGS (1)
  1. EOVIST [Suspect]
     Indication: PRODUCT USED FOR UNKNOWN INDICATION
     Dosage: 10 ML, ONCE
     Route: 042
     Dates: start: 20101130, end: 20101130

REACTIONS (1)
  - FEELING HOT [None]
